FAERS Safety Report 7490773-6 (Version None)
Quarter: 2011Q2

REPORT INFORMATION
  Report Type: 
  Country: None (occurrence: None)
  Receive Date: 20110519
  Receipt Date: 20110422
  Transmission Date: 20111010
  Serious: Yes (Other)
  Sender: FDA-Public Use
  Company Number: US-BAYER-201027125NA

PATIENT
  Age: 38 Year
  Sex: Female
  Weight: 110.66 kg

DRUGS (38)
  1. ELOCON [Concomitant]
     Indication: MULTIPLE ALLERGIES
     Dosage: UNK UNK, BID
  2. JANUVIA [Concomitant]
     Indication: DIABETES MELLITUS
     Dosage: 100 MG, QD
  3. GLIPIZIDE [Concomitant]
     Dosage: UNK UNK, QD
  4. ASPIRIN [Concomitant]
     Dosage: 81 MG, QD
  5. ATENOLOL [Concomitant]
     Dosage: 50 MG, UNK
  6. IBUPROFEN [Concomitant]
  7. PAXIL [Concomitant]
     Indication: DEPRESSION
     Dosage: DAILY
     Dates: start: 20020101
  8. RHINOCORT [Concomitant]
     Indication: MULTIPLE ALLERGIES
     Dosage: UNK UNK, QD
     Dates: start: 20020101
  9. BENTYL [Concomitant]
     Indication: GASTROINTESTINAL PAIN
     Dosage: 20 MG, QD
     Route: 048
  10. RESPIRATORY SYSTEM [Concomitant]
     Dosage: 5 MG, UNK
  11. ACETAMINOPHEN AND HYDROCODONE BITARTRATE [Concomitant]
  12. ERY-TAB [Concomitant]
     Dosage: 333 MG, UNK
  13. CIPROFLOXACIN [Concomitant]
  14. DROSPIRENONE AND ETHINYL ESTRADIOL [Suspect]
     Indication: POLYCYSTIC OVARIES
     Dosage: UNK
     Dates: start: 20080701, end: 20091101
  15. MULTI-VITAMINS [Concomitant]
     Dosage: UNK UNK, BID
  16. PATANOL [Concomitant]
  17. SPIRONOLACTONE [Concomitant]
     Indication: DIURETIC THERAPY
     Dosage: 25 MG, QD
     Dates: start: 20000101
  18. RESPIRATORY SYSTEM [Concomitant]
     Indication: MULTIPLE ALLERGIES
     Dosage: AS DIRECTED
     Dates: start: 20020101
  19. OLOPATADINE HYDROCHLORIDE [Concomitant]
     Indication: MULTIPLE ALLERGIES
     Dosage: UNK UNK, QD
  20. NEBIVOLOL HCL [Concomitant]
     Indication: UNEVALUABLE EVENT
     Dosage: 5 MG, QD
  21. CEPHALEXIN [Concomitant]
     Dosage: 500 MG, UNK
  22. DICYCLOMINE [Concomitant]
     Dosage: 20 MG, UNK
  23. CARAFATE [Concomitant]
     Indication: ULCER
     Dosage: UNK UNK, TID
     Route: 048
  24. METFORMIN HCL [Concomitant]
     Indication: DIABETES MELLITUS
     Dosage: 850 MG, TID
  25. DIOVAN HCT [Concomitant]
     Indication: BLOOD PRESSURE ABNORMAL
     Dosage: 25 MG, QD
  26. LOTRISONE [Concomitant]
     Dosage: UNK UNK, PRN
  27. PRILOSEC [Concomitant]
     Dosage: 40 MG, UNK
  28. AMITRIPTYLINE HCL [Concomitant]
  29. YASMIN [Suspect]
     Indication: POLYCYSTIC OVARIES
     Dosage: UNK
     Route: 048
     Dates: start: 20021101, end: 20080601
  30. YAZ [Suspect]
     Indication: POLYCYSTIC OVARIES
     Dosage: UNK
     Route: 048
     Dates: start: 20021101
  31. ACIPHEX [Concomitant]
     Indication: MULTIPLE ALLERGIES
     Dosage: 20 MG, QD
     Route: 048
  32. PAXIL CR [Concomitant]
     Dosage: 12.5 MG, UNK
  33. PAROXETINE HCL [Concomitant]
     Dosage: 20 MG, UNK
  34. LISINOPRIL [Concomitant]
     Indication: HYPERTENSION
     Dosage: 5 MG, UNK
     Dates: start: 20020101
  35. ALLEGRA [Concomitant]
     Indication: MULTIPLE ALLERGIES
     Dosage: 180 MG, QD
  36. NEBIVOLOL HCL [Concomitant]
  37. FEOSOL [Concomitant]
     Indication: BLOOD IRON DECREASED
     Dosage: UNK UNK, QD
  38. CHONDROITIN W/GLUCOSAMINE [Concomitant]
     Indication: ARTHRITIS
     Dosage: UNK UNK, QD

REACTIONS (13)
  - VOMITING [None]
  - NAUSEA [None]
  - OESOPHAGEAL SPASM [None]
  - HEPATOBILIARY SCAN ABNORMAL [None]
  - FOOD INTOLERANCE [None]
  - GALLBLADDER CHOLESTEROLOSIS [None]
  - BARRETT'S OESOPHAGUS [None]
  - ABDOMINAL PAIN UPPER [None]
  - GASTRITIS EROSIVE [None]
  - CHOLECYSTITIS CHRONIC [None]
  - GASTROOESOPHAGEAL REFLUX DISEASE [None]
  - BILIARY COLIC [None]
  - ABDOMINAL PAIN [None]
